FAERS Safety Report 5474883-0 (Version None)
Quarter: 2007Q3

REPORT INFORMATION
  Report Type: 
  Country: None (occurrence: None)
  Receive Date: 20070928
  Receipt Date: 20070919
  Transmission Date: 20080115
  Serious: Yes (Other)
  Sender: FDA-Public Use
  Company Number: 2007BI019856

PATIENT
  Age: 53 Year
  Sex: Female

DRUGS (4)
  1. NATALIZUMAB (NATALIZUMAB) [Suspect]
     Indication: MULTIPLE SCLEROSIS
     Dosage: 300 MG; QM; IV
     Route: 042
     Dates: start: 20061130, end: 20070919
  2. BACLOFEN [Concomitant]
  3. METAPROLOL [Concomitant]
  4. OPIPRAMOL [Concomitant]

REACTIONS (1)
  - BREAST CANCER [None]
